FAERS Safety Report 7420898-2 (Version None)
Quarter: 2011Q2

REPORT INFORMATION
  Report Type: 
  Country: None (occurrence: None)
  Receive Date: 20110418
  Receipt Date: 20110408
  Transmission Date: 20111010
  Serious: Yes (Disabling)
  Sender: FDA-Public Use
  Company Number: A0923078A

PATIENT
  Age: 70 Year
  Sex: Male
  Weight: 106.7 kg

DRUGS (37)
  1. LOTRIMIN [Suspect]
  2. ZETIA [Suspect]
  3. ASPIRIN [Concomitant]
  4. POTASSIUM CHLORIDE [Concomitant]
  5. PRAVASTATIN [Concomitant]
  6. BILBERRY [Concomitant]
  7. CLOZAPINE [Concomitant]
  8. FOLIC ACID [Concomitant]
  9. ALPRAZOLAM [Suspect]
  10. PLAVIX [Suspect]
  11. DIGOXIN [Concomitant]
  12. LUMIGAN [Concomitant]
  13. COREG [Suspect]
  14. XALATAN [Suspect]
  15. ADVIL LIQUI-GELS [Suspect]
     Indication: BACK PAIN
     Dosage: 200MG AS REQUIRED
     Dates: end: 20110301
  16. TRAMADOL HCL [Suspect]
  17. TOPROL-XL [Suspect]
  18. VICODIN [Concomitant]
  19. ALLOPURINOL [Concomitant]
  20. LIPITOR [Suspect]
  21. THERA TEARS [Concomitant]
  22. DIAZEPAM [Concomitant]
  23. ZOCOR [Suspect]
  24. CYCLOSPORINE [Suspect]
  25. PILOCARPINE [Concomitant]
  26. METFORMIN HCL [Suspect]
     Dosage: 500MG UNKNOWN
     Dates: start: 20101010
  27. PROSCAR [Suspect]
  28. REGLAN [Suspect]
  29. LUVOX [Suspect]
  30. TIMOLOL [Concomitant]
  31. PROZAC [Suspect]
  32. LOSARTAN [Concomitant]
  33. FUROSEMIDE [Concomitant]
  34. OXYCODONE [Concomitant]
  35. LANTUS [Concomitant]
  36. METOPROLOL [Concomitant]
  37. FISH OIL [Concomitant]

REACTIONS (9)
  - HIP ARTHROPLASTY [None]
  - SKIN IRRITATION [None]
  - NAUSEA [None]
  - DYSPNOEA [None]
  - SLEEP DISORDER [None]
  - MYALGIA [None]
  - ASTHENIA [None]
  - ABASIA [None]
  - VOMITING [None]
